FAERS Safety Report 8964359 (Version 1)
Quarter: 2012Q4

REPORT INFORMATION
  Report Type: 
  Country: US (occurrence: US)
  Receive Date: 20121214
  Receipt Date: 20121214
  Transmission Date: 20130627
  Serious: No
  Sender: FDA-Public Use
  Company Number: US-GLAXOSMITHKLINE-A0975732A

PATIENT
  Age: 80 Year
  Sex: Male

DRUGS (3)
  1. AVODART [Suspect]
     Indication: PROSTATOMEGALY
     Dosage: 1CAP Per day
     Route: 048
     Dates: start: 2009, end: 201201
  2. NITROGLYCERIN [Concomitant]
  3. BABY ASPIRIN [Concomitant]

REACTIONS (9)
  - Breast enlargement [Unknown]
  - Muscular weakness [Unknown]
  - Breast mass [Unknown]
  - Breast pain [Unknown]
  - Fall [Unknown]
  - Depressed mood [Unknown]
  - Anxiety [Unknown]
  - Dizziness [Unknown]
  - Balance disorder [Unknown]
